FAERS Safety Report 10252213 (Version 1)
Quarter: 2014Q2

REPORT INFORMATION
  Report Type: Spontaneous
  Country: RO (occurrence: RO)
  Receive Date: 20140623
  Receipt Date: 20140623
  Transmission Date: 20141212
  Serious: Yes (Other)
  Sender: FDA-Public Use
  Company Number: RO-JNJFOC-20140609237

PATIENT
  Age: 49 Year
  Sex: Female

DRUGS (14)
  1. DOXORUBICINA [Suspect]
     Indication: ADULT T-CELL LYMPHOMA/LEUKAEMIA
     Route: 042
  2. VINCRISTINE [Suspect]
     Indication: ADULT T-CELL LYMPHOMA/LEUKAEMIA
     Route: 065
  3. CYCLOPHOSPHAMIDE [Suspect]
     Indication: ADULT T-CELL LYMPHOMA/LEUKAEMIA
     Route: 065
  4. PREDNISONE [Suspect]
     Indication: ADULT T-CELL LYMPHOMA/LEUKAEMIA
     Route: 065
  5. RANIMUSTINE [Suspect]
     Indication: ADULT T-CELL LYMPHOMA/LEUKAEMIA
     Route: 065
  6. VINDESINE [Suspect]
     Indication: ADULT T-CELL LYMPHOMA/LEUKAEMIA
     Route: 065
  7. ETOPOSIDE [Suspect]
     Indication: ADULT T-CELL LYMPHOMA/LEUKAEMIA
     Route: 065
  8. CARBOPLATIN [Suspect]
     Indication: ADULT T-CELL LYMPHOMA/LEUKAEMIA
     Route: 065
  9. ANTIRETROVIRALS (NOS) [Suspect]
     Indication: PRODUCT USED FOR UNKNOWN INDICATION
     Route: 065
  10. INTERFERON [Suspect]
     Indication: PRODUCT USED FOR UNKNOWN INDICATION
     Route: 065
  11. TRIMETHOPRIM/SULFAMETHOXAZOLE [Concomitant]
     Indication: PROPHYLAXIS
     Route: 065
  12. ACYCLOVIR [Concomitant]
     Indication: PROPHYLAXIS
     Route: 065
  13. FLUCONAZOLE [Concomitant]
     Indication: PROPHYLAXIS
     Route: 065
  14. GRANULOCYTE STIMULATING FACTOR [Concomitant]
     Indication: PROPHYLAXIS
     Route: 065

REACTIONS (2)
  - Aplasia [Unknown]
  - Therapeutic product ineffective [Unknown]
